FAERS Safety Report 9854993 (Version 1)
Quarter: 2014Q1

REPORT INFORMATION
  Report Type: Spontaneous
  Country: RU (occurrence: RU)
  Receive Date: 20140130
  Receipt Date: 20140130
  Transmission Date: 20141002
  Serious: Yes (Death)
  Sender: FDA-Public Use
  Company Number: RU-ROCHE-1341391

PATIENT
  Age: 69 Year
  Sex: Male

DRUGS (8)
  1. XELODA [Suspect]
     Indication: HER-2 POSITIVE GASTRIC CANCER
     Dosage: 2 G/M2 1-14 DAYS
     Route: 048
     Dates: start: 201101, end: 201111
  2. XELODA [Suspect]
     Indication: METASTASES TO LIVER
  3. HERCEPTIN [Suspect]
     Indication: HER-2 POSITIVE GASTRIC CANCER
     Route: 041
     Dates: start: 201105, end: 201111
  4. HERCEPTIN [Suspect]
     Indication: METASTASES TO LIVER
     Dosage: 1 DAY
     Route: 041
     Dates: start: 201111, end: 201201
  5. PACLITAXEL [Concomitant]
     Indication: HER-2 POSITIVE GASTRIC CANCER
     Dosage: 1 DAY
     Route: 041
     Dates: start: 201101, end: 201111
  6. PACLITAXEL [Concomitant]
     Indication: METASTASES TO LIVER
  7. CISPLATINE [Concomitant]
     Indication: HER-2 POSITIVE GASTRIC CANCER
     Route: 041
     Dates: start: 201101, end: 201105
  8. CISPLATINE [Concomitant]
     Indication: METASTASES TO LIVER

REACTIONS (1)
  - Disease progression [Fatal]
